FAERS Safety Report 22590790 (Version 1)
Quarter: 2023Q2

REPORT INFORMATION
  Report Type: Report from Study
  Country: CA (occurrence: CA)
  Receive Date: 20230612
  Receipt Date: 20230612
  Transmission Date: 20230722
  Serious: Yes (Death, Other)
  Sender: FDA-Public Use
  Company Number: CA-IPSEN Group, Research and Development-2020-24553

PATIENT
  Age: 51 Year
  Sex: Female

DRUGS (2)
  1. LANREOTIDE ACETATE [Suspect]
     Active Substance: LANREOTIDE ACETATE
     Indication: Carcinoid syndrome
     Route: 058
     Dates: start: 20200618, end: 2020
  2. LANREOTIDE ACETATE [Suspect]
     Active Substance: LANREOTIDE ACETATE
     Route: 058
     Dates: start: 2020

REACTIONS (3)
  - Death [Fatal]
  - Off label use [Unknown]
  - Drug ineffective [Unknown]

NARRATIVE: CASE EVENT DATE: 20200101
